FAERS Safety Report 25114414 (Version 1)
Quarter: 2025Q1

REPORT INFORMATION
  Report Type: Spontaneous
  Country: PL (occurrence: PL)
  Receive Date: 20250324
  Receipt Date: 20250324
  Transmission Date: 20250409
  Serious: Yes (Other)
  Sender: FRESENIUS KABI
  Company Number: PL-009507513-2261273

PATIENT
  Age: 53 Year
  Sex: Female

DRUGS (12)
  1. PEMETREXED DISODIUM [Suspect]
     Active Substance: PEMETREXED DISODIUM
     Indication: Lung adenocarcinoma stage IV
     Dates: end: 20240808
  2. PEMETREXED DISODIUM [Suspect]
     Active Substance: PEMETREXED DISODIUM
     Dates: start: 20240830, end: 20240830
  3. PEMBROLIZUMAB [Suspect]
     Active Substance: PEMBROLIZUMAB
     Indication: Lung adenocarcinoma stage IV
     Dosage: FOA: SOLUTION FOR INFUSION
     Route: 042
     Dates: end: 20240808
  4. PEMBROLIZUMAB [Suspect]
     Active Substance: PEMBROLIZUMAB
     Dosage: FOA: SOLUTION FOR INFUSION
     Route: 042
     Dates: start: 20240830, end: 20240830
  5. CARBOPLATIN [Suspect]
     Active Substance: CARBOPLATIN
     Indication: Lung adenocarcinoma stage IV
     Dosage: AREA UNDER THE CURVE (AUC) = 6
     Dates: end: 20240808
  6. CARBOPLATIN [Suspect]
     Active Substance: CARBOPLATIN
     Dates: start: 20240830, end: 20240830
  7. PEGFILGRASTIM [Suspect]
     Active Substance: PEGFILGRASTIM
     Indication: Prophylaxis
     Dosage: ON DAY 2 OF THE CHEMOTHERAPY CYCLE ONLY FOR CYCLES USING ?CARBOPLATIN
     Route: 058
     Dates: end: 20240809
  8. ENOXAPARIN SODIUM [Concomitant]
     Active Substance: ENOXAPARIN SODIUM
     Indication: Fibrin D dimer increased
     Dates: start: 20240808
  9. Co-Prestarium [Amlodipine besilate, Perindopril Arginine] [Concomitant]
     Indication: Product used for unknown indication
     Dosage: STRENGTH: 7+5 (UNITS NOT PROVIDED), IN THE MORNING?FORM: TABLET
  10. Indapres [Indapamide] [Concomitant]
     Indication: Product used for unknown indication
  11. FOLIC ACID [Concomitant]
     Active Substance: FOLIC ACID
     Indication: Product used for unknown indication
  12. DEXAMETHASONE [Concomitant]
     Active Substance: DEXAMETHASONE
     Indication: Product used for unknown indication
     Dosage: THE MEDICATION IS TAKEN 1 DAY BEFORE CHEMOTHERAPY, ON THE DAY OF CHEMOTHERAPY, AND 1 DAY AFTER CHEMO
     Route: 048

REACTIONS (5)
  - Hyperthyroidism [Unknown]
  - Bone pain [Recovered/Resolved]
  - Arthralgia [Recovered/Resolved]
  - Lid lag [Unknown]
  - Inappropriate schedule of product administration [Unknown]

NARRATIVE: CASE EVENT DATE: 20240801
